FAERS Safety Report 8622980-0 (Version None)
Quarter: 2012Q3

REPORT INFORMATION
  Report Type: 
  Country: None (occurrence: None)
  Receive Date: 20120827
  Receipt Date: 20120822
  Transmission Date: 20120928
  Serious: Yes (Life-Threatening)
  Sender: FDA-Public Use
  Company Number: PHHY2012BR073166

PATIENT
  Sex: Female

DRUGS (5)
  1. METFORMIN HCL [Suspect]
     Dosage: 1000/50 MG, UNK
  2. AGLUCOSE [Concomitant]
     Indication: DIABETES MELLITUS
     Dosage: UNK UKN, UNK
  3. ATENOLOL [Concomitant]
     Dosage: UNK UKN, UNK
  4. AGLITIL [Concomitant]
     Dosage: UNK UKN, UNK
  5. DIOVAN [Suspect]
     Dosage: 160/12.5/5 MG, UNK

REACTIONS (4)
  - HEADACHE [None]
  - BLOOD GLUCOSE INCREASED [None]
  - COMA [None]
  - BLOOD PRESSURE INADEQUATELY CONTROLLED [None]
